FAERS Safety Report 5106868-8 (Version None)
Quarter: 2006Q3

REPORT INFORMATION
  Report Type: 
  Country: None (occurrence: None)
  Receive Date: 20060913
  Receipt Date: 20060829
  Transmission Date: 20061208
  Serious: Yes (Hospitalization)
  Sender: FDA-Public Use
  Company Number: 02100-JPN-06-0127

PATIENT
  Age: 63 Year
  Sex: Male

DRUGS (3)
  1. CILOSTAZOL [Suspect]
     Indication: CEREBROVASCULAR ACCIDENT
     Dosage: ONE OF 200 MG OR 75 MG, ORAL
     Route: 048
     Dates: start: 20060110, end: 20060803
  2. CLOPIDOGREL [Suspect]
     Indication: CEREBROVASCULAR ACCIDENT
     Dosage: ONE OF 200MG OR 75MG, ORAL
     Route: 048
     Dates: start: 20060110, end: 20060803
  3. POST-MEDICATION: CILOSTAZOL [Concomitant]

REACTIONS (5)
  - AGITATION [None]
  - ANXIETY [None]
  - BLISTER [None]
  - DEPRESSION [None]
  - INSOMNIA [None]
